FAERS Safety Report 7328305-5 (Version None)
Quarter: 2011Q1

REPORT INFORMATION
  Report Type: 
  Country: None (occurrence: None)
  Receive Date: 20110222
  Receipt Date: 20110204
  Transmission Date: 20110831
  Serious: Yes (Other)
  Sender: FDA-Public Use
  Company Number: AUR-APL-2010-03247

PATIENT
  Age: 56 Year
  Sex: Male
  Weight: 81.63 kg

DRUGS (8)
  1. XANAX [Suspect]
     Indication: INSOMNIA
     Dosage: 1MG-4MG
     Dates: start: 19840101
  2. XANAX [Suspect]
     Indication: ANXIETY
     Dosage: 1MG-4MG
     Dates: start: 19840101
  3. CELEBREX [Suspect]
     Indication: PAIN
     Dosage: 200MG- DAILY - ORAL
     Route: 048
     Dates: start: 20050101
  4. LISINOPRIL [Suspect]
     Indication: BLOOD CHOLESTEROL INCREASED
     Dosage: ORAL
     Route: 048
     Dates: start: 20100101
  5. LISINOPRIL [Suspect]
     Indication: HYPERTENSION
     Dosage: ORAL
     Route: 048
     Dates: start: 20100101
  6. HYDROCODONE/IBUPROPEN [Concomitant]
  7. ZOLOFT [Suspect]
     Indication: DEPRESSION
     Dosage: 200MG- DAILY - ORAL
     Route: 048
  8. NOTRIPTYLINE HC1 [Concomitant]

REACTIONS (12)
  - HERNIA [None]
  - DIZZINESS [None]
  - DRUG DEPENDENCE [None]
  - BLOOD TRIGLYCERIDES INCREASED [None]
  - FEELING ABNORMAL [None]
  - INJURY [None]
  - DEPRESSION [None]
  - FATIGUE [None]
  - BLOOD THYROID STIMULATING HORMONE INCREASED [None]
  - VISUAL IMPAIRMENT [None]
  - HEARING IMPAIRED [None]
  - DRUG INEFFECTIVE [None]
